FAERS Safety Report 12524508 (Version 2)
Quarter: 2016Q3

REPORT INFORMATION
  Report Type: Spontaneous
  Country: JP (occurrence: JP)
  Receive Date: 20160704
  Receipt Date: 20160726
  Transmission Date: 20161109
  Serious: No
  Sender: FDA-Public Use
  Company Number: JP-009507513-1607JPN000067

PATIENT
  Age: 67 Year
  Sex: Male
  Weight: 65 kg

DRUGS (5)
  1. JANUVIA [Suspect]
     Active Substance: SITAGLIPTIN PHOSPHATE
     Dosage: SOMETIMES TAKING 1 TABLET (50 MG A DAY), BUT OTHER TIMES 2 TABLETS (100 MG A DAY)
     Route: 048
     Dates: start: 2016, end: 20160617
  2. JANUVIA [Suspect]
     Active Substance: SITAGLIPTIN PHOSPHATE
     Dosage: ONE TABLET (50 MG A DAY)
     Route: 048
     Dates: start: 20160210, end: 20160426
  3. LYRICA [Concomitant]
     Active Substance: PREGABALIN
     Dosage: FOUR TABLETS IN 2 DIVIDED DOSES
     Route: 048
     Dates: start: 201603
  4. JANUVIA [Suspect]
     Active Substance: SITAGLIPTIN PHOSPHATE
     Indication: DIABETES MELLITUS
     Dosage: 100 MG, QD
     Route: 048
     Dates: start: 20160427, end: 2016
  5. JANUVIA [Suspect]
     Active Substance: SITAGLIPTIN PHOSPHATE
     Dosage: 50 MG, EVERY OTHER DAY
     Route: 048
     Dates: start: 20160621

REACTIONS (2)
  - Hypoaesthesia [Recovered/Resolved]
  - Muscular weakness [Recovered/Resolved]

NARRATIVE: CASE EVENT DATE: 201604
